FAERS Safety Report 10654776 (Version 1)
Quarter: 2014Q4

REPORT INFORMATION
  Report Type: Spontaneous
  Country: GB (occurrence: None)
  Receive Date: 20141212
  Receipt Date: 20141212
  Transmission Date: 20150529
  Serious: Yes (Hospitalization)
  Sender: FDA-Public Use
  Company Number: GB-DEXPHARM-20141026

PATIENT
  Age: 33 Year
  Sex: Female

DRUGS (1)
  1. VOLTAROL [Suspect]
     Active Substance: DICLOFENAC SODIUM
     Route: 030

REACTIONS (11)
  - Injection site necrosis [None]
  - Cellulitis [None]
  - Injection site inflammation [None]
  - Injection site pruritus [None]
  - Impaired healing [None]
  - Sepsis [None]
  - Skin exfoliation [None]
  - Fat necrosis [None]
  - Skin graft [None]
  - Infection [None]
  - Injection site erythema [None]
